FAERS Safety Report 7121302-4 (Version None)
Quarter: 2010Q4

REPORT INFORMATION
  Report Type: 
  Country: None (occurrence: None)
  Receive Date: 20101124
  Receipt Date: 20101116
  Transmission Date: 20110411
  Serious: Yes (Hospitalization, Other)
  Sender: FDA-Public Use
  Company Number: CA-JNJFOC-20100807679

PATIENT
  Sex: Male
  Weight: 74.4 kg

DRUGS (4)
  1. REMICADE [Suspect]
     Indication: CROHN'S DISEASE
     Route: 042
  2. REMICADE [Suspect]
     Route: 042
  3. IMURAN [Concomitant]
  4. IRON SUPPLEMENTS [Concomitant]

REACTIONS (2)
  - INTESTINAL RESECTION [None]
  - POSTOPERATIVE WOUND INFECTION [None]
